FAERS Safety Report 6669778-0 (Version None)
Quarter: 2010Q2

REPORT INFORMATION
  Report Type: 
  Country: None (occurrence: None)
  Receive Date: 20100402
  Receipt Date: 20100322
  Transmission Date: 20101027
  Serious: Yes (Death)
  Sender: FDA-Public Use
  Company Number: DSA_42854_2010

PATIENT
  Age: 47 Year
  Sex: Female

DRUGS (1)
  1. ELONTRIL - BUPROPION HYDROCHLORIDE EXTENDED RELEASE 150 MG [Suspect]
     Indication: DEPRESSION
     Dosage: (150 MG, ORAL)
     Route: 048
     Dates: start: 20100222

REACTIONS (3)
  - MYALGIA [None]
  - NERVOUSNESS [None]
  - SUDDEN DEATH [None]
